FAERS Safety Report 14928982 (Version 3)
Quarter: 2018Q3

REPORT INFORMATION
  Report Type: Spontaneous
  Country: US (occurrence: US)
  Receive Date: 20180523
  Receipt Date: 20180907
  Transmission Date: 20181010
  Serious: Yes (Hospitalization)
  Sender: FDA-Public Use
  Company Number: US-PFIZER INC-2018205457

PATIENT
  Age: 91 Year
  Sex: Male

DRUGS (1)
  1. LYRICA [Suspect]
     Active Substance: PREGABALIN
     Indication: NEURALGIA
     Dosage: 50 MG, 3X/DAY (1 1/2 TO 2 YEARS)

REACTIONS (4)
  - Dizziness [Recovered/Resolved]
  - Dysstasia [Recovered/Resolved]
  - Oxygen saturation abnormal [Recovering/Resolving]
  - Nephrolithiasis [Not Recovered/Not Resolved]
